FAERS Safety Report 6255223-6 (Version None)
Quarter: 2009Q3

REPORT INFORMATION
  Report Type: 
  Country: None (occurrence: None)
  Receive Date: 20090702
  Receipt Date: 20090501
  Transmission Date: 20100115
  Serious: No
  Sender: FDA-Public Use
  Company Number: US-BAYER-200920867NA

PATIENT
  Age: 60 Year
  Sex: Male
  Weight: 73 kg

DRUGS (2)
  1. ULTRAVIST 300 [Suspect]
     Indication: COMPUTERISED TOMOGRAM
     Dosage: TOTAL DAILY DOSE: 110 ML
     Route: 042
     Dates: start: 20090501, end: 20090501
  2. BARIUM [Concomitant]
     Route: 048

REACTIONS (2)
  - DIZZINESS [None]
  - MUSCULAR WEAKNESS [None]
